FAERS Safety Report 8465409-8 (Version None)
Quarter: 2012Q2

REPORT INFORMATION
  Report Type: 
  Country: None (occurrence: None)
  Receive Date: 20120626
  Receipt Date: 20120618
  Transmission Date: 20120825
  Serious: Yes (Hospitalization)
  Sender: FDA-Public Use
  Company Number: US-BAYER-2012-062049

PATIENT
  Age: 50 Year
  Sex: Female
  Weight: 89.342 kg

DRUGS (6)
  1. DROSPIRENONE AND ETHINYL ESTRADIOL [Suspect]
  2. NEOMYCIN SULF/POLYMYXIN B SULF/DEXAMETHASONE [Concomitant]
     Dosage: UNK
     Route: 047
     Dates: start: 20120116
  3. CARAC [Concomitant]
     Indication: HYPERKERATOSIS
     Dosage: UNK
     Dates: start: 20111221
  4. YASMIN [Suspect]
     Indication: DYSMENORRHOEA
  5. YAZ [Suspect]
  6. YASMIN [Suspect]
     Indication: MENORRHAGIA

REACTIONS (2)
  - DEEP VEIN THROMBOSIS [None]
  - PULMONARY EMBOLISM [None]
